FAERS Safety Report 8918983 (Version 1)
Quarter: 2012Q4

REPORT INFORMATION
  Report Type: 
  Country: PT (occurrence: PT)
  Receive Date: 20121121
  Receipt Date: 20121121
  Transmission Date: 20130627
  Serious: Yes (Other)
  Sender: FDA-Public Use
  Company Number: PT-MPIJNJ-2012-08103

PATIENT

DRUGS (7)
  1. VELCADE [Suspect]
     Indication: MULTIPLE MYELOMA
     Route: 065
  2. THALIDOMIDE [Concomitant]
     Indication: MULTIPLE MYELOMA
  3. DEXAMETHASONE [Concomitant]
     Indication: MULTIPLE MYELOMA
  4. CISPLATIN [Concomitant]
     Indication: MULTIPLE MYELOMA
  5. DOXORUBICIN [Concomitant]
     Indication: MULTIPLE MYELOMA
  6. CYCLOPHOSPHAMIDE [Concomitant]
     Indication: MULTIPLE MYELOMA
  7. ETOPOSIDE [Concomitant]
     Indication: MULTIPLE MYELOMA

REACTIONS (1)
  - Haematotoxicity [Unknown]
